FAERS Safety Report 4579569-2 (Version None)
Quarter: 2005Q1

REPORT INFORMATION
  Report Type: 
  Country: None (occurrence: None)
  Receive Date: 20050214
  Receipt Date: 20050201
  Transmission Date: 20050727
  Serious: Yes (Hospitalization)
  Sender: FDA-Public Use
  Company Number: US-JNJFOC-20040900406

PATIENT
  Sex: Female
  Weight: 58.97 kg

DRUGS (14)
  1. REMICADE [Suspect]
     Dosage: SECOND DOSE
     Route: 042
  2. REMICADE [Suspect]
     Indication: RHEUMATOID ARTHRITIS
     Route: 042
  3. REMERON [Suspect]
     Indication: DRUG USE FOR UNKNOWN INDICATION
  4. METHOTREXATE [Suspect]
     Indication: DRUG USE FOR UNKNOWN INDICATION
  5. CELEBREX [Concomitant]
  6. PREDNISONE [Concomitant]
  7. ULTRAM [Concomitant]
  8. ZOCOR [Concomitant]
  9. NEXIUM [Concomitant]
  10. ADVAIR DISKUS 100/50 [Concomitant]
  11. ADVAIR DISKUS 100/50 [Concomitant]
  12. THYROID TAB [Concomitant]
  13. ATENOLOL [Concomitant]
  14. ALBUTEROL [Concomitant]

REACTIONS (9)
  - ACUTE RESPIRATORY FAILURE [None]
  - ALVEOLITIS [None]
  - ARRHYTHMIA [None]
  - BRADYCARDIA [None]
  - FAILURE OF IMPLANT [None]
  - HYPERSENSITIVITY [None]
  - INTERSTITIAL LUNG DISEASE [None]
  - PNEUMONIA [None]
  - PNEUMONITIS [None]
